FAERS Safety Report 11766826 (Version 1)
Quarter: 2015Q4

REPORT INFORMATION
  Report Type: Spontaneous
  Country: AT (occurrence: AT)
  Receive Date: 20151123
  Receipt Date: 20151123
  Transmission Date: 20160304
  Serious: Yes (Hospitalization)
  Sender: FDA-Public Use
  Company Number: AT-BAYER-2015-438592

PATIENT
  Age: 42 Year
  Sex: Female

DRUGS (1)
  1. MIRENA [Suspect]
     Active Substance: LEVONORGESTREL
     Indication: CONTRACEPTION
     Dosage: 20 MCG/24HR, CONT
     Route: 015
     Dates: start: 20150313, end: 20150731

REACTIONS (3)
  - Migraine [Recovered/Resolved]
  - Vertigo [Recovered/Resolved]
  - Syncope [Recovered/Resolved]

NARRATIVE: CASE EVENT DATE: 2015
